FAERS Safety Report 6515738-X (Version None)
Quarter: 2009Q4

REPORT INFORMATION
  Report Type: 
  Country: None (occurrence: None)
  Receive Date: 20091223
  Receipt Date: 20091215
  Transmission Date: 20100525
  Serious: Yes (Other)
  Sender: FDA-Public Use
  Company Number: DE-JNJFOC-20091206054

PATIENT
  Age: 34 Year
  Sex: Male

DRUGS (2)
  1. REMICADE [Suspect]
     Indication: ANKYLOSING SPONDYLITIS
     Route: 042
     Dates: start: 20090301
  2. CYMBALTA [Concomitant]
     Indication: DEPRESSION

REACTIONS (1)
  - RADIAL NERVE PALSY [None]
